FAERS Safety Report 9263203 (Version 2)
Quarter: 2013Q2

REPORT INFORMATION
  Report Type: Spontaneous
  Country: DE (occurrence: DE)
  Receive Date: 20130430
  Receipt Date: 20130524
  Transmission Date: 20140414
  Serious: Yes (Hospitalization, Other)
  Sender: FDA-Public Use
  Company Number: DE-ROCHE-1219922

PATIENT
  Sex: Female
  Weight: 74 kg

DRUGS (4)
  1. ROACTEMRA [Suspect]
     Indication: RHEUMATOID ARTHRITIS
     Dosage: FOUR MOST RECENT DOSE RECEIVIED PRIOR TO EVENT ON 05/FEB/2013, 06/MAR/2013, 04/APR/2013 AND 06/MAY/2
     Route: 042
     Dates: start: 20120312, end: 20130506
  2. METHOTREXAT [Concomitant]
     Indication: RHEUMATOID ARTHRITIS
     Route: 058
  3. FOLIC ACID [Concomitant]
     Route: 065
  4. PANTOZOL [Concomitant]
     Route: 065

REACTIONS (2)
  - Pleurisy [Not Recovered/Not Resolved]
  - Pleural effusion [Not Recovered/Not Resolved]
